FAERS Safety Report 19009203 (Version 3)
Quarter: 2021Q3

REPORT INFORMATION
  Report Type: Other
  Country: US (occurrence: US)
  Receive Date: 20210316
  Receipt Date: 20210715
  Transmission Date: 20211014
  Serious: Yes (Other)
  Sender: FDA-Public Use
  Company Number: US-ROCHE-2783637

PATIENT
  Age: 65 Year
  Sex: Male

DRUGS (2)
  1. COPAXONE [Concomitant]
     Active Substance: GLATIRAMER ACETATE
     Indication: MULTIPLE SCLEROSIS
  2. OCREVUS [Suspect]
     Active Substance: OCRELIZUMAB
     Indication: RELAPSING-REMITTING MULTIPLE SCLEROSIS
     Dosage: ONGOING: NO?DATE OF TREATMENT; 20/SEP/2018, 04/OCT/2018, 14/NOV/2018, 13/MAY/2019, 13/NOV/2019, 03/M
     Route: 042
     Dates: start: 20181031, end: 20191112

REACTIONS (6)
  - Fall [Unknown]
  - Muscular weakness [Not Recovered/Not Resolved]
  - Multiple sclerosis relapse [Recovered/Resolved]
  - Infection [Not Recovered/Not Resolved]
  - Prostate cancer [Recovered/Resolved]
  - Pain [Recovered/Resolved]

NARRATIVE: CASE EVENT DATE: 202101
